FAERS Safety Report 20805028 (Version 10)
Quarter: 2023Q2

REPORT INFORMATION
  Report Type: Spontaneous
  Country: US (occurrence: US)
  Receive Date: 20220509
  Receipt Date: 20230531
  Transmission Date: 20230721
  Serious: No
  Sender: FDA-Public Use
  Company Number: US-PFIZER INC-202200354711

PATIENT
  Age: 80 Year
  Sex: Male
  Weight: 105.7 kg

DRUGS (2)
  1. LORBRENA [Suspect]
     Active Substance: LORLATINIB
     Indication: Lung adenocarcinoma
     Dosage: 50 MG, DAILY (IN THE MORNING)
     Route: 048
  2. LORBRENA [Suspect]
     Active Substance: LORLATINIB
     Dosage: 75 MG, DAILY
     Route: 048

REACTIONS (4)
  - Joint swelling [Not Recovered/Not Resolved]
  - Dysphemia [Unknown]
  - Skin tightness [Unknown]
  - Thinking abnormal [Unknown]
